FAERS Safety Report 7743237-6 (Version None)
Quarter: 2011Q3

REPORT INFORMATION
  Report Type: 
  Country: None (occurrence: None)
  Receive Date: 20110908
  Receipt Date: 20110908
  Transmission Date: 20111222
  Serious: Yes (Hospitalization)
  Sender: FDA-Public Use
  Company Number: None

PATIENT
  Age: 57 Year
  Sex: Female
  Weight: 80 kg

DRUGS (12)
  1. WARFARIN SODIUM [Concomitant]
  2. LISINOPRIL [Concomitant]
  3. FUROSEMIDE [Concomitant]
  4. FASLODEX [Suspect]
     Indication: BREAST CANCER METASTATIC
     Dosage: 250 MG/SYRINGE X 2 SYRINGES ONCE IM
     Route: 030
     Dates: start: 20110810
  5. FASLODEX [Suspect]
     Indication: OESTROGEN RECEPTOR ASSAY POSITIVE
     Dosage: 250 MG/SYRINGE X 2 SYRINGES ONCE IM
     Route: 030
     Dates: start: 20110810
  6. METOPROLOL TARTRATE [Concomitant]
  7. OXYCODONE HCL [Concomitant]
  8. DEXAMETHASONE [Concomitant]
  9. CALCIUM VITAMIN D [Concomitant]
  10. COLACE [Concomitant]
  11. OXYCONTIN SR [Concomitant]
  12. SENNA [Concomitant]

REACTIONS (13)
  - THROAT TIGHTNESS [None]
  - GENERALISED OEDEMA [None]
  - CARDIOMEGALY [None]
  - BREATH SOUNDS ABNORMAL [None]
  - LUNG INFILTRATION [None]
  - HYPOTENSION [None]
  - HYPOXIA [None]
  - HYPOALBUMINAEMIA [None]
  - DYSPNOEA [None]
  - BLOOD PRESSURE SYSTOLIC INCREASED [None]
  - ANXIETY [None]
  - RADIATION PNEUMONITIS [None]
  - PNEUMONIA [None]
